FAERS Safety Report 19745194 (Version 1)
Quarter: 2021Q3

REPORT INFORMATION
  Report Type: Spontaneous
  Country: CZ (occurrence: CZ)
  Receive Date: 20210825
  Receipt Date: 20210825
  Transmission Date: 20211014
  Serious: Yes (Other)
  Sender: FDA-Public Use
  Company Number: CZ-PFIZER INC-202101045334

PATIENT
  Age: 31 Year
  Sex: Male

DRUGS (6)
  1. COSENTYX [Suspect]
     Active Substance: SECUKINUMAB
     Dosage: 2 DF (150)
     Route: 065
  2. COSENTYX [Suspect]
     Active Substance: SECUKINUMAB
     Dosage: 1 DF (ONLY ONE DOSE)
     Route: 065
     Dates: start: 20210722
  3. IMUNOR [TRANSFER FACTOR] [Concomitant]
     Indication: IMMUNE SYSTEM DISORDER
     Dosage: UNK
     Route: 065
  4. GENTADEX [Concomitant]
     Active Substance: DEXAMETHASONE SODIUM PHOSPHATE\GENTAMICIN SULFATE
     Indication: OTITIS EXTERNA
     Dosage: UNK
     Route: 065
  5. FLUCONAZOLE. [Suspect]
     Active Substance: FLUCONAZOLE
     Dosage: 2 DF (100), 1X/DAY
     Route: 065
  6. CLOTRIMAZOLE. [Concomitant]
     Active Substance: CLOTRIMAZOLE
     Dosage: UNK
     Route: 065

REACTIONS (1)
  - Candida infection [Not Recovered/Not Resolved]
